FAERS Safety Report 25931918 (Version 1)
Quarter: 2025Q4

REPORT INFORMATION
  Report Type: Spontaneous
  Country: US (occurrence: US)
  Receive Date: 20251016
  Receipt Date: 20251016
  Transmission Date: 20260118
  Serious: Yes (Other)
  Sender: NOVO NORDISK
  Company Number: US-NOVOPROD-1539924

PATIENT
  Age: 57 Year
  Sex: Female
  Weight: 136 kg

DRUGS (1)
  1. OZEMPIC [Suspect]
     Active Substance: SEMAGLUTIDE
     Indication: Weight control
     Dosage: UNK

REACTIONS (5)
  - Hernia [Unknown]
  - Ligament rupture [Unknown]
  - Meniscus injury [Unknown]
  - Osteoarthritis [Unknown]
  - Off label use [Unknown]
